FAERS Safety Report 20386095 (Version 1)
Quarter: 2022Q1

REPORT INFORMATION
  Report Type: Spontaneous
  Country: US (occurrence: US)
  Receive Date: 20220127
  Receipt Date: 20220127
  Transmission Date: 20220423
  Serious: Yes (Other)
  Sender: FDA-Public Use
  Company Number: US-PFIZER INC-2018281700

PATIENT
  Age: 62 Year
  Sex: Female

DRUGS (4)
  1. XELJANZ XR [Suspect]
     Active Substance: TOFACITINIB CITRATE
     Indication: Dermatomyositis
     Dosage: 11 MG, 1X/DAY
     Route: 048
  2. XELJANZ XR [Suspect]
     Active Substance: TOFACITINIB CITRATE
     Indication: Alopecia
  3. XELJANZ XR [Suspect]
     Active Substance: TOFACITINIB CITRATE
     Indication: Osteoarthritis
  4. DESONIDE [Concomitant]
     Active Substance: DESONIDE
     Dosage: 0.05 %
     Route: 061

REACTIONS (3)
  - Myocardial infarction [Unknown]
  - Thrombosis [Unknown]
  - Off label use [Unknown]
